FAERS Safety Report 11379407 (Version 1)
Quarter: 2015Q3

REPORT INFORMATION
  Report Type: Spontaneous
  Country: US (occurrence: None)
  Receive Date: 20150813
  Receipt Date: 20150813
  Transmission Date: 20151125
  Serious: Yes (Hospitalization, Other)
  Sender: FDA-Public Use
  Company Number: None

PATIENT
  Age: 60 Year
  Sex: Female
  Weight: 77.57 kg

DRUGS (9)
  1. VITS [Concomitant]
  2. NATUREMADE CALCIUM [Concomitant]
  3. TRIAMTERENE-HCTZ [Suspect]
     Active Substance: HYDROCHLOROTHIAZIDE\TRIAMTERENE
     Indication: OEDEMA
     Route: 048
     Dates: start: 2003, end: 20150730
  4. TRIAM [Concomitant]
     Active Substance: TRIAMCINOLONE
  5. FOLIC B6 [Concomitant]
  6. VITAMIN B12 [Concomitant]
     Active Substance: CYANOCOBALAMIN
  7. MULTI-VIT 50+ [Concomitant]
  8. NATUREMADE STRESS FORMULA B12 [Concomitant]
  9. SPECTRAVITE NOW D3+K [Concomitant]

REACTIONS (8)
  - Gait disturbance [None]
  - Heart rate increased [None]
  - Movement disorder [None]
  - Heart rate irregular [None]
  - Photosensitivity reaction [None]
  - Dyspnoea [None]
  - Blood potassium decreased [None]
  - Abdominal pain upper [None]

NARRATIVE: CASE EVENT DATE: 20150717
